FAERS Safety Report 9617202 (Version 3)
Quarter: 2013Q4

REPORT INFORMATION
  Report Type: Spontaneous
  Country: JP (occurrence: JP)
  Receive Date: 20131011
  Receipt Date: 20131017
  Transmission Date: 20140711
  Serious: Yes (Other)
  Sender: FDA-Public Use
  Company Number: ALCN2008JP001728

PATIENT
  Age: 57 Year
  Sex: Male
  Weight: 67.15 kg

DRUGS (1)
  1. VEGAMOX [Suspect]
     Indication: HORDEOLUM
     Dosage: 1 GTT, QD
     Dates: start: 20080716, end: 20080716

REACTIONS (1)
  - Anaphylactoid reaction [Recovered/Resolved]
